FAERS Safety Report 9235062 (Version 1)
Quarter: 2013Q2

REPORT INFORMATION
  Report Type: Spontaneous
  Country: US (occurrence: US)
  Receive Date: 20130416
  Receipt Date: 20130416
  Transmission Date: 20140414
  Serious: No
  Sender: FDA-Public Use
  Company Number: US-B.I. PHARMACEUTICALS,INC./RIDGEFIELD-2013-BI-09057BP

PATIENT
  Sex: Female

DRUGS (2)
  1. SPIRIVA [Suspect]
     Dosage: 72 MCG
     Route: 055
     Dates: start: 20130328
  2. AVELOX [Concomitant]
     Route: 048

REACTIONS (2)
  - Drug prescribing error [Not Recovered/Not Resolved]
  - Pyrexia [Not Recovered/Not Resolved]
